FAERS Safety Report 9774324 (Version 1)
Quarter: 2013Q4

REPORT INFORMATION
  Report Type: Report from Study
  Country: CA (occurrence: CA)
  Receive Date: 20131220
  Receipt Date: 20131220
  Transmission Date: 20140711
  Serious: Yes (Other)
  Sender: FDA-Public Use
  Company Number: CA-JNJFOC-20131208754

PATIENT
  Age: 28 Year
  Sex: Male
  Weight: 65.9 kg

DRUGS (3)
  1. REMICADE [Suspect]
     Indication: CROHN^S DISEASE
     Route: 042
     Dates: start: 20111031
  2. OXYCODONE [Concomitant]
     Dosage: PRN
     Route: 065
  3. CANNABIS [Concomitant]
     Route: 065

REACTIONS (1)
  - Cyst [Recovering/Resolving]
